FAERS Safety Report 10681813 (Version 2)
Quarter: 2015Q1

REPORT INFORMATION
  Report Type: Spontaneous
  Country: FR (occurrence: FR)
  Receive Date: 20141230
  Receipt Date: 20150126
  Transmission Date: 20150720
  Serious: Yes (Other)
  Sender: FDA-Public Use
  Company Number: FR-TEVA-531420ISR

PATIENT
  Age: 35 Year
  Sex: Male

DRUGS (2)
  1. VINCRISTINE [Suspect]
     Active Substance: VINCRISTINE
     Indication: GLIOBLASTOMA
     Dosage: 3 COURSES
     Route: 065
  2. PROCARBAZINE [Suspect]
     Active Substance: PROCARBAZINE
     Indication: GLIOBLASTOMA
     Dosage: 3 COURSES
     Route: 065

REACTIONS (2)
  - Liver disorder [Unknown]
  - Blood disorder [Unknown]
